FAERS Safety Report 11346619 (Version 1)
Quarter: 2015Q3

REPORT INFORMATION
  Report Type: Spontaneous
  Country: US (occurrence: US)
  Receive Date: 20150803
  Receipt Date: 20150803
  Transmission Date: 20151125
  Serious: No
  Sender: FDA-Public Use
  Company Number: US-ELI_LILLY_AND_COMPANY-US201009001878

PATIENT
  Age: 16 Year
  Sex: Female

DRUGS (6)
  1. RISPERIDON [Concomitant]
     Active Substance: RISPERIDONE
     Indication: MANIA
  2. ZYPREXA [Suspect]
     Active Substance: OLANZAPINE
     Dosage: UNK,UNK
  3. ZYPREXA [Suspect]
     Active Substance: OLANZAPINE
     Indication: MANIA
     Dosage: 20 MG, DAILY (1/D)
  4. ZYPREXA [Suspect]
     Active Substance: OLANZAPINE
     Indication: MANIA
     Dosage: 10 MG, DAILY (1/D)
  5. HALDOL [Concomitant]
     Active Substance: HALOPERIDOL
     Indication: MANIA
  6. DEPAKOTE [Concomitant]
     Active Substance: DIVALPROEX SODIUM

REACTIONS (3)
  - Prescribed overdose [Recovered/Resolved]
  - Mania [Recovered/Resolved]
  - Dystonia [Unknown]
